FAERS Safety Report 8060303-9 (Version None)
Quarter: 2012Q1

REPORT INFORMATION
  Report Type: 
  Country: None (occurrence: None)
  Receive Date: 20120120
  Receipt Date: 20120117
  Transmission Date: 20120608
  Serious: No
  Sender: FDA-Public Use
  Company Number: US-PFIZER INC-2011305807

PATIENT
  Sex: Female
  Weight: 68.027 kg

DRUGS (4)
  1. CHANTIX [Suspect]
     Dosage: UNK
     Route: 048
  2. CHANTIX [Suspect]
     Dosage: 0.5 MG, 1X/DAY
     Route: 048
     Dates: start: 20110901
  3. CHANTIX [Suspect]
     Indication: SMOKING CESSATION THERAPY
     Dosage: 0.5 MG, 1X/DAY
     Dates: start: 20110901, end: 20111214
  4. CELEXA [Concomitant]
     Indication: OBSESSIVE-COMPULSIVE DISORDER
     Dosage: UNK

REACTIONS (1)
  - DRUG EFFECT DECREASED [None]
